FAERS Safety Report 24996817 (Version 2)
Quarter: 2025Q1

REPORT INFORMATION
  Report Type: Spontaneous
  Country: CA (occurrence: CA)
  Receive Date: 20250221
  Receipt Date: 20250224
  Transmission Date: 20250409
  Serious: Yes (Other)
  Sender: MERCK SHARP & DOHME LLC
  Company Number: None

PATIENT
  Age: 26 Year
  Sex: Female

DRUGS (8)
  1. TEMOZOLOMIDE [Suspect]
     Active Substance: TEMOZOLOMIDE
     Indication: Phaeochromocytoma malignant
     Route: 065
  2. TOPOTECAN HYDROCHLORIDE [Suspect]
     Active Substance: TOPOTECAN HYDROCHLORIDE
     Indication: Paraganglion neoplasm malignant
     Route: 065
  3. CYCLOPHOSPHAMIDE [Suspect]
     Active Substance: CYCLOPHOSPHAMIDE
     Indication: Phaeochromocytoma malignant
     Route: 065
  4. MESNA [Suspect]
     Active Substance: MESNA
     Indication: Paraganglion neoplasm malignant
     Route: 065
  5. AFINITOR [Suspect]
     Active Substance: EVEROLIMUS
     Indication: Paraganglion neoplasm malignant
     Route: 065
  6. AFINITOR [Suspect]
     Active Substance: EVEROLIMUS
     Indication: Paraganglion neoplasm malignant
     Route: 065
  7. VANDETANIB [Suspect]
     Active Substance: VANDETANIB
     Indication: Phaeochromocytoma malignant
     Route: 065
  8. SUNITINIB MALATE [Suspect]
     Active Substance: SUNITINIB MALATE
     Route: 065

REACTIONS (8)
  - Metastases to liver [Recovering/Resolving]
  - Headache [Recovering/Resolving]
  - Insomnia [Recovering/Resolving]
  - Product use in unapproved indication [Unknown]
  - Pancytopenia [Recovering/Resolving]
  - Metastases to central nervous system [Recovering/Resolving]
  - Off label use [Unknown]
  - Metastases to bone [Recovering/Resolving]
